FAERS Safety Report 19435929 (Version 1)
Quarter: 2021Q2

REPORT INFORMATION
  Report Type: Spontaneous
  Country: GB (occurrence: GB)
  Receive Date: 20210618
  Receipt Date: 20210618
  Transmission Date: 20210717
  Serious: Yes (Other)
  Sender: FDA-Public Use
  Company Number: GB-PERRIGO-21GB007649

PATIENT

DRUGS (3)
  1. GAVISCON                           /00237601/ [Suspect]
     Active Substance: ALUMINUM HYDROXIDE\MAGNESIUM CARBONATE
     Dosage: UNK
     Route: 065
  2. IBUPROFEN. [Suspect]
     Active Substance: IBUPROFEN
     Indication: PRODUCT USED FOR UNKNOWN INDICATION
     Dosage: UNK
     Route: 065
  3. VACCINES [Suspect]
     Active Substance: UNSPECIFIED INGREDIENT
     Dosage: DOSE 1
     Route: 065
     Dates: start: 20210527

REACTIONS (7)
  - Burning sensation [Recovered/Resolved]
  - Chest discomfort [Not Recovered/Not Resolved]
  - Palpitations [Not Recovered/Not Resolved]
  - Dyspnoea [Not Recovered/Not Resolved]
  - Chest pain [Not Recovered/Not Resolved]
  - Musculoskeletal pain [Recovered/Resolved]
  - Anal incontinence [Recovered/Resolved]

NARRATIVE: CASE EVENT DATE: 20210528
